FAERS Safety Report 9738754 (Version 1)
Quarter: 2013Q4

REPORT INFORMATION
  Report Type: Spontaneous
  Country: US (occurrence: US)
  Receive Date: 20131209
  Receipt Date: 20131209
  Transmission Date: 20140711
  Serious: Yes (Other)
  Sender: FDA-Public Use
  Company Number: US-RB-060623-13

PATIENT
  Age: 21 Year
  Sex: Female

DRUGS (1)
  1. MUCINEX DM MAXIMUM STRENGTH [Suspect]
     Indication: PRODUCT USED FOR UNKNOWN INDICATION
     Dosage: TOOK 1 TABLET ON 29-NOV-2013
     Route: 048
     Dates: start: 20131129

REACTIONS (8)
  - Hallucination [Unknown]
  - Agitation [Not Recovered/Not Resolved]
  - Abasia [Unknown]
  - Mydriasis [Not Recovered/Not Resolved]
  - Nervousness [Not Recovered/Not Resolved]
  - Somnolence [Unknown]
  - Dizziness [Unknown]
  - Nausea [Unknown]
